FAERS Safety Report 9263059 (Version 1)
Quarter: 2013Q2

REPORT INFORMATION
  Report Type: Spontaneous
  Country: IR (occurrence: IR)
  Receive Date: 20130430
  Receipt Date: 20130430
  Transmission Date: 20140414
  Serious: Yes (Hospitalization)
  Sender: FDA-Public Use
  Company Number: IR-ROCHE-1219274

PATIENT
  Age: 29 Year
  Sex: Male

DRUGS (1)
  1. MABTHERA [Suspect]
     Indication: PEMPHIGUS
     Route: 065

REACTIONS (1)
  - Monarthritis [Not Recovered/Not Resolved]
